FAERS Safety Report 20040543 (Version 1)
Quarter: 2021Q4

REPORT INFORMATION
  Report Type: Spontaneous
  Country: US (occurrence: None)
  Receive Date: 20211106
  Receipt Date: 20211106
  Transmission Date: 20220304
  Serious: No
  Sender: FDA-Public Use
  Company Number: None

PATIENT
  Age: 38 Year
  Sex: Male
  Weight: 94.5 kg

DRUGS (1)
  1. CREST PRO-HEALTH MULTI-PROTECTION REFRESHING CLEAN MINT [Suspect]
     Active Substance: CETYLPYRIDINIUM CHLORIDE
     Indication: Dental care
     Dates: start: 20211104, end: 20211105

REACTIONS (3)
  - Ageusia [None]
  - Hypoaesthesia oral [None]
  - Paraesthesia oral [None]

NARRATIVE: CASE EVENT DATE: 20211105
